FAERS Safety Report 8648995 (Version 3)
Quarter: 2012Q4

REPORT INFORMATION
  Report Type: 
  Country: US (occurrence: US)
  Receive Date: 20120704
  Receipt Date: 20121113
  Transmission Date: 20130627
  Serious: Yes (Disabling, Other)
  Sender: FDA-Public Use
  Company Number: PHEH2012US012892

PATIENT
  Sex: Female
  Weight: 54.42 kg

DRUGS (4)
  1. RECLAST [Suspect]
     Indication: OSTEOPOROSIS
     Dosage: UNK UKN, UNK
     Route: 042
     Dates: start: 201110
  2. VITAMINS [Concomitant]
  3. MINERALS NOS [Concomitant]
  4. CHEMOTHERAPEUTICS [Concomitant]

REACTIONS (5)
  - Cerebrovascular accident [Recovering/Resolving]
  - Cystitis [Unknown]
  - Tooth loss [Unknown]
  - Tooth fracture [Unknown]
  - Loose tooth [Unknown]
